FAERS Safety Report 23931510 (Version 3)
Quarter: 2024Q3

REPORT INFORMATION
  Report Type: Spontaneous
  Country: US (occurrence: None)
  Receive Date: 20240603
  Receipt Date: 20240716
  Transmission Date: 20241017
  Serious: No
  Sender: ASTRAZENECA
  Company Number: 2024A067394

PATIENT
  Age: 1012 Month
  Sex: Female
  Weight: 56.2 kg

DRUGS (3)
  1. SYMBICORT [Suspect]
     Active Substance: BUDESONIDE\FORMOTEROL FUMARATE DIHYDRATE
     Indication: Asthma
     Dosage: 160/4.5 MCG 120 INHALATIONS. UNKNOWN UNKNOWN
     Route: 055
     Dates: start: 202402
  2. SYMBICORT [Suspect]
     Active Substance: BUDESONIDE\FORMOTEROL FUMARATE DIHYDRATE
     Indication: Asthma
     Dosage: 160/4.5 MCG 120 INHALATIONS. UNKNOWN UNKNOWN
     Route: 055
     Dates: start: 202403
  3. SYMBICORT [Suspect]
     Active Substance: BUDESONIDE\FORMOTEROL FUMARATE DIHYDRATE
     Indication: Asthma
     Dosage: 2 PUFFS160.0UG UNKNOWN
     Route: 055
     Dates: start: 20221206

REACTIONS (5)
  - Asthma [Unknown]
  - Intentional device misuse [Unknown]
  - Device malfunction [Unknown]
  - Product use issue [Unknown]
  - Device ineffective [Unknown]

NARRATIVE: CASE EVENT DATE: 20231001
